FAERS Safety Report 8014946-9 (Version None)
Quarter: 2011Q4

REPORT INFORMATION
  Report Type: 
  Country: None (occurrence: None)
  Receive Date: 20111229
  Receipt Date: 20111219
  Transmission Date: 20120403
  Serious: Yes (Other)
  Sender: FDA-Public Use
  Company Number: JP-ROCHE-717171

PATIENT
  Sex: Male
  Weight: 54.6 kg

DRUGS (21)
  1. ACTEMRA [Suspect]
     Route: 041
     Dates: start: 20100804, end: 20100812
  2. ACTEMRA [Suspect]
     Route: 041
     Dates: start: 20101216, end: 20110114
  3. PREDNISOLONE AND PREDNISOLONE ACETATE AND PREDNISOLONE SODIUM SUCCINAT [Suspect]
     Route: 048
     Dates: start: 20100329, end: 20100408
  4. PREDNISOLONE AND PREDNISOLONE ACETATE AND PREDNISOLONE SODIUM SUCCINAT [Suspect]
     Route: 048
     Dates: start: 20100409, end: 20100412
  5. PREDNISOLONE AND PREDNISOLONE ACETATE AND PREDNISOLONE SODIUM SUCCINAT [Suspect]
     Route: 048
     Dates: start: 20100604, end: 20100812
  6. PREDNISOLONE AND PREDNISOLONE ACETATE AND PREDNISOLONE SODIUM SUCCINAT [Suspect]
     Route: 048
     Dates: start: 20100312, end: 20100328
  7. ACTEMRA [Suspect]
     Route: 041
     Dates: start: 20100715, end: 20100729
  8. PREDNISOLONE AND PREDNISOLONE ACETATE AND PREDNISOLONE SODIUM SUCCINAT [Suspect]
     Route: 048
     Dates: start: 20100813, end: 20100826
  9. PREDNISOLONE AND PREDNISOLONE ACETATE AND PREDNISOLONE SODIUM SUCCINAT [Suspect]
     Route: 048
     Dates: start: 20101105, end: 20101201
  10. ACTEMRA [Suspect]
     Route: 041
     Dates: start: 20100826, end: 20101201
  11. PREDNISOLONE AND PREDNISOLONE ACETATE AND PREDNISOLONE SODIUM SUCCINAT [Suspect]
     Dosage: EVERY OTHER DAY 15 MG AND 5 MG
     Route: 048
     Dates: start: 20100528, end: 20100603
  12. PREDNISOLONE AND PREDNISOLONE ACETATE AND PREDNISOLONE SODIUM SUCCINAT [Suspect]
     Indication: CASTLEMAN'S DISEASE
     Route: 048
     Dates: start: 20100216, end: 20100228
  13. PREDNISOLONE AND PREDNISOLONE ACETATE AND PREDNISOLONE SODIUM SUCCINAT [Suspect]
     Route: 048
     Dates: start: 20100416, end: 20100419
  14. PREDNISOLONE AND PREDNISOLONE ACETATE AND PREDNISOLONE SODIUM SUCCINAT [Suspect]
     Dosage: EVERY OTHER DAY 10MG AND 5MG
     Route: 048
     Dates: start: 20100827, end: 20101007
  15. PREDNISOLONE AND PREDNISOLONE ACETATE AND PREDNISOLONE SODIUM SUCCINAT [Suspect]
     Route: 048
     Dates: start: 20101021, end: 20101104
  16. PREDNISOLONE AND PREDNISOLONE ACETATE AND PREDNISOLONE SODIUM SUCCINAT [Suspect]
     Route: 048
     Dates: start: 20101008, end: 20101020
  17. ACTEMRA [Suspect]
     Indication: CASTLEMAN'S DISEASE
     Route: 041
     Dates: start: 20100520, end: 20100701
  18. ACTEMRA [Suspect]
     Route: 041
  19. PREDNISOLONE AND PREDNISOLONE ACETATE AND PREDNISOLONE SODIUM SUCCINAT [Suspect]
     Route: 048
     Dates: start: 20100413, end: 20100415
  20. PREDNISOLONE AND PREDNISOLONE ACETATE AND PREDNISOLONE SODIUM SUCCINAT [Suspect]
     Dosage: EVERY OTHER DAY 20 MG AND 10 MG
     Route: 048
     Dates: start: 20100430, end: 20100527
  21. PREDNISOLONE AND PREDNISOLONE ACETATE AND PREDNISOLONE SODIUM SUCCINAT [Suspect]
     Route: 048
     Dates: start: 20100301, end: 20100311

REACTIONS (3)
  - SPLENIC INJURY [None]
  - LYMPHOPENIA [None]
  - MALAISE [None]
